FAERS Safety Report 9380251 (Version 1)
Quarter: 2013Q3

REPORT INFORMATION
  Report Type: Spontaneous
  Country: US (occurrence: US)
  Receive Date: 20130702
  Receipt Date: 20130702
  Transmission Date: 20140515
  Serious: Yes (Other)
  Sender: FDA-Public Use
  Company Number: US-JNJFOC-20130619240

PATIENT
  Age: 48 Year
  Sex: Male

DRUGS (6)
  1. XARELTO [Suspect]
     Indication: THROMBOSIS PROPHYLAXIS
     Route: 048
  2. XARELTO [Suspect]
     Indication: THROMBOSIS PROPHYLAXIS
     Route: 048
     Dates: start: 20130611, end: 20130619
  3. XARELTO [Suspect]
     Indication: KNEE ARTHROPLASTY
     Route: 048
  4. XARELTO [Suspect]
     Indication: KNEE ARTHROPLASTY
     Route: 048
     Dates: start: 20130611, end: 20130619
  5. LORTAB [Concomitant]
     Indication: POSTOPERATIVE CARE
     Route: 065
  6. FLEXERIL [Concomitant]
     Indication: POSTOPERATIVE CARE
     Route: 065

REACTIONS (1)
  - Pulmonary embolism [Recovering/Resolving]
